FAERS Safety Report 7020177-1 (Version None)
Quarter: 2010Q3

REPORT INFORMATION
  Report Type: 
  Country: None (occurrence: None)
  Receive Date: 20100927
  Receipt Date: 20100915
  Transmission Date: 20110219
  Serious: Yes (Life-Threatening, Hospitalization, Other)
  Sender: FDA-Public Use
  Company Number: 2010AC000368

PATIENT
  Age: 56 Year
  Sex: Male

DRUGS (12)
  1. DIGOXIN [Suspect]
     Dosage: PO
     Route: 048
     Dates: start: 20060301, end: 20080601
  2. DIGOXIN [Suspect]
     Dosage: 0.125 MG;QD;PO
     Route: 048
     Dates: start: 20070604, end: 20080301
  3. GLIPIZIDE [Concomitant]
  4. PREDNISONE [Concomitant]
  5. POTASSIUM CHLORIDE [Concomitant]
  6. PRILOSEC [Concomitant]
  7. TOPROL-XL [Concomitant]
  8. SINGULAIR [Concomitant]
  9. REMICADE [Concomitant]
  10. COLCHICINE [Concomitant]
  11. DILTIAZEM HCL [Concomitant]
  12. AMIODARONE [Concomitant]

REACTIONS (14)
  - ANXIETY [None]
  - ATRIAL FIBRILLATION [None]
  - ATRIAL FLUTTER [None]
  - CARDIAC DISORDER [None]
  - DEPRESSION [None]
  - ECONOMIC PROBLEM [None]
  - HYPOTENSION [None]
  - MITRAL VALVE INCOMPETENCE [None]
  - MULTIPLE INJURIES [None]
  - ORTHOPNOEA [None]
  - PAIN [None]
  - PERICARDIAL EFFUSION [None]
  - PLEURAL EFFUSION [None]
  - RETCHING [None]
